FAERS Safety Report 18034170 (Version 2)
Quarter: 2020Q3

REPORT INFORMATION
  Report Type: Spontaneous
  Country: US (occurrence: US)
  Receive Date: 20200716
  Receipt Date: 20200807
  Transmission Date: 20201103
  Serious: Yes (Other)
  Sender: FDA-Public Use
  Company Number: US-BAYER-2020-138199

PATIENT
  Sex: Female

DRUGS (1)
  1. ASPIRIN (PAIN AND FEVER) [Suspect]
     Active Substance: ASPIRIN
     Dosage: UNK

REACTIONS (14)
  - Hypothyroidism [Unknown]
  - Depression [Unknown]
  - Tremor [Unknown]
  - Insomnia [Unknown]
  - Haemorrhage [Unknown]
  - Blood disorder [Unknown]
  - Abdominal pain upper [Unknown]
  - Drug ineffective [Unknown]
  - Haemorrhoids [Unknown]
  - Muscle spasms [Unknown]
  - Hypoaesthesia [Unknown]
  - Dizziness [Unknown]
  - Mental status changes [Unknown]
  - Fibromyalgia [Unknown]
